FAERS Safety Report 4683241-8 (Version None)
Quarter: 2005Q2

REPORT INFORMATION
  Report Type: 
  Country: None (occurrence: None)
  Receive Date: 20050602
  Receipt Date: 20050204
  Transmission Date: 20051028
  Serious: Yes (Other)
  Sender: FDA-Public Use
  Company Number: USA050290023

PATIENT
  Age: 22 Year
  Sex: Female

DRUGS (2)
  1. CYMBALTA [Suspect]
     Indication: DEPRESSION
     Dosage: 60 MG
     Dates: start: 20041101, end: 20050114
  2. DILANTIN (PHENTOIN) [Concomitant]

REACTIONS (3)
  - DEPRESSION SUICIDAL [None]
  - HALLUCINATION [None]
  - SUICIDE ATTEMPT [None]
